FAERS Safety Report 13091793 (Version 1)
Quarter: 2017Q1

REPORT INFORMATION
  Report Type: Spontaneous
  Country: GB (occurrence: GB)
  Receive Date: 20170106
  Receipt Date: 20170106
  Transmission Date: 20170428
  Serious: Yes (Hospitalization, Other)
  Sender: FDA-Public Use
  Company Number: GB-AUROBINDO-AUR-APL-2016-16032

PATIENT
  Age: 78 Year
  Sex: Female
  Weight: 79 kg

DRUGS (13)
  1. ACETAMINOPHEN. [Concomitant]
     Active Substance: ACETAMINOPHEN
     Indication: OSTEOARTHRITIS
     Dosage: UNK
     Route: 048
     Dates: start: 2010
  2. CALCICHEW [Concomitant]
     Active Substance: CALCIUM CARBONATE
     Indication: PROPHYLAXIS
     Dosage: UNK
     Route: 048
     Dates: start: 2010
  3. ALBUTEROL                          /00139501/ [Concomitant]
     Active Substance: ALBUTEROL
     Indication: PRODUCT USED FOR UNKNOWN INDICATION
     Dosage: UNK
     Route: 065
     Dates: start: 2005
  4. BISOPROLOL [Concomitant]
     Active Substance: BISOPROLOL
     Indication: HYPERTENSION
     Dosage: 1.25 MG, QD
     Route: 048
     Dates: start: 2013
  5. LEVOTHYROXINE SODIUM. [Concomitant]
     Active Substance: LEVOTHYROXINE SODIUM
     Indication: HYPOTHYROIDISM
     Dosage: 50 MICROGRAM, QD
     Route: 048
     Dates: start: 2011
  6. CALCICHEW [Concomitant]
     Active Substance: CALCIUM CARBONATE
     Indication: ROUTINE HEALTH MAINTENANCE
  7. LANSOPRAZOLE. [Concomitant]
     Active Substance: LANSOPRAZOLE
     Indication: GASTROOESOPHAGEAL REFLUX DISEASE
     Dosage: 30 MG, QD
     Route: 048
     Dates: start: 2005
  8. SERETIDE [Concomitant]
     Active Substance: FLUTICASONE PROPIONATE\SALMETEROL XINAFOATE
     Indication: CHRONIC OBSTRUCTIVE PULMONARY DISEASE
     Dosage: 250 MICROGRAM, BID
     Route: 055
     Dates: start: 2010
  9. SIMVASTATIN. [Concomitant]
     Active Substance: SIMVASTATIN
     Indication: ARTERIOSCLEROSIS
     Dosage: 40 MG, QD
     Route: 048
     Dates: start: 201308
  10. MOVELAT                            /00479601/ [Concomitant]
     Indication: OSTEOARTHRITIS
     Dosage: UNK
     Route: 065
     Dates: start: 2010
  11. WARFARIN [Concomitant]
     Active Substance: WARFARIN
     Indication: CARDIOVASCULAR EVENT PROPHYLAXIS
     Dosage: 4 MG, QD
     Route: 048
     Dates: start: 201308
  12. LISINOPRIL TABLET [Suspect]
     Active Substance: LISINOPRIL
     Indication: HYPERTENSION
     Dosage: 2.3 MG, 1X/DAY
     Route: 048
     Dates: start: 2013
  13. ISOSORBIDE MONONITRATE. [Concomitant]
     Active Substance: ISOSORBIDE MONONITRATE
     Indication: CARDIOVASCULAR EVENT PROPHYLAXIS
     Dosage: 40 MG, QD
     Route: 048
     Dates: start: 201308

REACTIONS (7)
  - Blood pressure diastolic decreased [Recovered/Resolved]
  - Atrial fibrillation [Not Recovered/Not Resolved]
  - Type 2 diabetes mellitus [Not Recovered/Not Resolved]
  - Cerebrovascular accident [Recovered/Resolved]
  - Arteriosclerosis [Unknown]
  - Lung neoplasm malignant [Recovered/Resolved]
  - Hypertension [Not Recovered/Not Resolved]

NARRATIVE: CASE EVENT DATE: 2013
